FAERS Safety Report 14700765 (Version 1)
Quarter: 2018Q1

REPORT INFORMATION
  Report Type: Spontaneous
  Country: US (occurrence: US)
  Receive Date: 20180330
  Receipt Date: 20180330
  Transmission Date: 20180509
  Serious: No
  Sender: FDA-Public Use
  Company Number: US-IMPAX LABORATORIES, INC-2017-IPXL-02071

PATIENT
  Age: 62 Year
  Sex: Female
  Weight: 61 kg

DRUGS (3)
  1. CALTRATE [Concomitant]
     Active Substance: CALCIUM CARBONATE
     Indication: SUPPLEMENTATION THERAPY
     Dosage: UNK
     Route: 065
  2. ANASTROZOLE. [Concomitant]
     Active Substance: ANASTROZOLE
     Indication: BREAST CANCER
     Dosage: 1 MG, UNK
     Route: 065
  3. ALENDRONATE SODIUM IR [Suspect]
     Active Substance: ALENDRONATE SODIUM
     Indication: OSTEOPENIA
     Dosage: 70 MG, 1 TABLET, 1 /WEEK
     Route: 048
     Dates: start: 2010

REACTIONS (3)
  - Oropharyngeal pain [Not Recovered/Not Resolved]
  - Foreign body in respiratory tract [Unknown]
  - Throat irritation [Not Recovered/Not Resolved]

NARRATIVE: CASE EVENT DATE: 20170701
